FAERS Safety Report 15612689 (Version 2)
Quarter: 2018Q4

REPORT INFORMATION
  Report Type: Report from Study
  Country: US (occurrence: US)
  Receive Date: 20181113
  Receipt Date: 20181113
  Transmission Date: 20190205
  Serious: No
  Sender: FDA-Public Use
  Company Number: US-AGIOS-1810US00251

PATIENT

DRUGS (2)
  1. TIBSOVO [Suspect]
     Active Substance: IVOSIDENIB
     Indication: ACUTE MYELOID LEUKAEMIA (IN REMISSION)
     Dosage: 250 MILLIGRAM, 2 TABLETS DAILY
     Route: 048
     Dates: start: 20180907
  2. CENTRUM SILVER                     /02363801/ [Concomitant]
     Active Substance: MINERALS\VITAMINS

REACTIONS (1)
  - Peripheral swelling [Recovering/Resolving]
